FAERS Safety Report 13144053 (Version 1)
Quarter: 2017Q1

REPORT INFORMATION
  Report Type: Spontaneous
  Country: US (occurrence: US)
  Receive Date: 20170124
  Receipt Date: 20170124
  Transmission Date: 20170428
  Serious: No
  Sender: FDA-Public Use
  Company Number: US-009507513-1701USA009794

PATIENT
  Age: 58 Year
  Sex: Female

DRUGS (7)
  1. TIROSINT [Concomitant]
     Active Substance: LEVOTHYROXINE SODIUM
  2. PROPRANOLOL HYDROCHLORIDE. [Concomitant]
     Active Substance: PROPRANOLOL HYDROCHLORIDE
     Route: 048
  3. ZEPATIER [Suspect]
     Active Substance: ELBASVIR\GRAZOPREVIR
     Indication: HEPATITIS C
     Dosage: 50MG/100MG ONE TIME DAILY
     Route: 048
     Dates: start: 20161230
  4. SEROQUEL [Concomitant]
     Active Substance: QUETIAPINE FUMARATE
  5. LINZESS [Concomitant]
     Active Substance: LINACLOTIDE
     Dosage: 1 UNK, UNK
  6. BUSPIRONE HYDROCHLORIDE. [Concomitant]
     Active Substance: BUSPIRONE HYDROCHLORIDE
  7. TRAMADOL HYDROCHLORIDE (+) KETOROLAC TROMETHAMINE [Concomitant]

REACTIONS (1)
  - Headache [Not Recovered/Not Resolved]
